FAERS Safety Report 5083416-2 (Version None)
Quarter: 2006Q3

REPORT INFORMATION
  Report Type: 
  Country: None (occurrence: None)
  Receive Date: 20060818
  Receipt Date: 20060808
  Transmission Date: 20061208
  Serious: Yes (Life-Threatening)
  Sender: FDA-Public Use
  Company Number: US-JNJFOC-20060803645

PATIENT
  Sex: Female
  Weight: 107.05 kg

DRUGS (9)
  1. REMICADE [Suspect]
     Route: 042
  2. REMICADE [Suspect]
     Indication: RHEUMATOID ARTHRITIS
     Dosage: 22 INFUSIONS
     Route: 042
  3. NAPROSYN [Concomitant]
  4. TYLENOL EXTRA STRENGTH [Concomitant]
     Dosage: 1 TO 2 TABLETS 4 TO 6 HOURS AS NEEDED
  5. VICODIN [Concomitant]
     Dosage: 500/5 1 TO 2 DAILY AS NEEDED
  6. DIAZIDE [Concomitant]
  7. WELLBUTRIN SR [Concomitant]
  8. ATIVAN [Concomitant]
  9. PEPCID AC [Concomitant]

REACTIONS (1)
  - BREAST CANCER [None]
